FAERS Safety Report 10050909 (Version 1)
Quarter: 2014Q1

REPORT INFORMATION
  Report Type: Spontaneous
  Country: US (occurrence: None)
  Receive Date: 20140328
  Receipt Date: 20140328
  Transmission Date: 20141002
  Serious: Yes (Hospitalization)
  Sender: FDA-Public Use
  Company Number: UTC-046288

PATIENT
  Age: 50 Year
  Sex: Female
  Weight: 68.03 kg

DRUGS (1)
  1. REMODULIN (2.5 MILLIGRAM/MILLILITERS, INJECTION FOR INFUSION (TREPROSTINIL SODIUM) [Suspect]
     Indication: COR PULMONALE CHRONIC
     Dosage: 90.72 UG/KG (0.063 UG/KG, 1 IN 1 MIN), INTRAVENOUS DRIP
     Dates: start: 20131128

REACTIONS (2)
  - Device dislocation [None]
  - Drug dose omission [None]
